FAERS Safety Report 5779488-X (Version None)
Quarter: 2008Q2

REPORT INFORMATION
  Report Type: 
  Country: None (occurrence: None)
  Receive Date: 20080619
  Receipt Date: 20080609
  Transmission Date: 20081010
  Serious: Yes (Hospitalization)
  Sender: FDA-Public Use
  Company Number: DE-ELI_LILLY_AND_COMPANY-DE200806001737

PATIENT
  Sex: Female

DRUGS (1)
  1. CYMBALTA [Suspect]
     Indication: PHOTOSENSITIVITY REACTION
     Dosage: 60 MG, DAILY (1/D)
     Route: 048
     Dates: start: 20080401, end: 20080512

REACTIONS (3)
  - CHILLS [None]
  - EPILEPSY [None]
  - SPEECH DISORDER [None]
